FAERS Safety Report 21482707 (Version 8)
Quarter: 2023Q2

REPORT INFORMATION
  Report Type: Report from Study
  Country: US (occurrence: US)
  Receive Date: 20221020
  Receipt Date: 20230525
  Transmission Date: 20230721
  Serious: Yes (Other)
  Sender: FDA-Public Use
  Company Number: US-ABBVIE-21K-163-4028294-00

PATIENT
  Sex: Male
  Weight: 109 kg

DRUGS (46)
  1. RINVOQ [Suspect]
     Active Substance: UPADACITINIB
     Indication: Rheumatoid arthritis
     Dosage: 15 MILLIGRAM, LAST ADMIN DATE: 2020
     Route: 048
     Dates: start: 20200825
  2. RINVOQ [Suspect]
     Active Substance: UPADACITINIB
     Indication: Rheumatoid arthritis
     Dosage: FORM STRENGTH: 15 MILLIGRAM
     Route: 048
  3. RINVOQ [Suspect]
     Active Substance: UPADACITINIB
     Indication: Rheumatoid arthritis
     Route: 048
  4. RINVOQ [Suspect]
     Active Substance: UPADACITINIB
     Indication: Rheumatoid arthritis
     Dosage: 15 MILLIGRAM?2 BEFORE MEALS AND A BEDTIME
     Route: 048
     Dates: start: 20200901
  5. RINVOQ [Suspect]
     Active Substance: UPADACITINIB
     Indication: Rheumatoid arthritis
     Route: 048
  6. CLONAZEPAM [Concomitant]
     Active Substance: CLONAZEPAM
     Indication: Sleep disorder
     Dosage: FORM STRENGTH: 1 MILLIGRAM?FREQUENCY TEXT: 1 IN THE MORNING
     Dates: start: 20190505
  7. SHINGRIX [Concomitant]
     Active Substance: RECOMBINANT VARICELLA ZOSTER VIRUS (VZV) GLYCOPROTEIN E
     Indication: Prophylaxis
     Dosage: 1ST SHOT
     Dates: start: 20200515, end: 20200515
  8. SHINGRIX [Concomitant]
     Active Substance: RECOMBINANT VARICELLA ZOSTER VIRUS (VZV) GLYCOPROTEIN E
     Indication: Prophylaxis
     Dosage: 2ND SHOT
     Dates: start: 20200814, end: 20200814
  9. Acetaminophen COD [Concomitant]
     Indication: Back pain
     Dosage: FREQUENCY TEXT: 1 AS NEEDED
     Route: 048
     Dates: start: 20220417
  10. COENZYME Q10 [Concomitant]
     Active Substance: DIETARY SUPPLEMENT\UBIDECARENONE
     Indication: Rheumatoid arthritis
  11. LOSARTAN POTASSIUM [Concomitant]
     Active Substance: LOSARTAN POTASSIUM
     Indication: Blood pressure measurement
     Dosage: FORM STRENGTH: 50 MILLIGRAM?FREQUENCY TEXT: 1 IN THE MORNING AND AT NIGHT
     Route: 048
     Dates: start: 20191115
  12. LEFLUNOMIDE [Concomitant]
     Active Substance: LEFLUNOMIDE
     Indication: Myalgia
     Dates: start: 20211026
  13. PRIMIDONE [Concomitant]
     Active Substance: PRIMIDONE
     Indication: Tremor
     Dosage: FORM STRENGTH: 50 MILLIGRAM?FREQUENCY TEXT: 1 IN THE MORNING AND AT NIGHT
     Dates: start: 20221215
  14. CETIRIZINE [Concomitant]
     Active Substance: CETIRIZINE HYDROCHLORIDE
     Indication: Hypersensitivity
     Dosage: FORM STRENGTH: 10 MILLIGRAM?FREQUENCY TEXT: 1 IN THE MORNING
     Dates: start: 20060101
  15. TIZANIDINE HYDROCHLORIDE [Concomitant]
     Active Substance: TIZANIDINE HYDROCHLORIDE
     Indication: Headache
     Dosage: FORM STRENGTH: 4 MILLIGRAM?FREQUENCY TEXT: 1 AT NIGHT
     Route: 048
     Dates: start: 20220303
  16. B2 [Concomitant]
     Indication: Angiopathy
     Dosage: 100 MG FREQUENCY TEXT: 2 AT NIGHT
     Dates: start: 20141107
  17. PANTOPRAZOLE SODIUM [Concomitant]
     Active Substance: PANTOPRAZOLE SODIUM
     Indication: Gastrooesophageal reflux disease
     Dosage: 1 PRE-BREAKFAST EVERYDAY AND 1 PRE- DINNER EVERY OTHER DAY?FORM STRENGTH: 40 MILLIGRAM
     Dates: start: 20181214
  18. MILK OF MAGNESIA [Concomitant]
     Active Substance: MAGNESIUM HYDROXIDE
     Indication: Impaired gastric emptying
     Dosage: FREQUENCY TEXT: NIGHTLY
     Dates: start: 20190618
  19. CODEINE [Concomitant]
     Active Substance: CODEINE
     Indication: Back pain
  20. PREDNISONE [Concomitant]
     Active Substance: PREDNISONE
     Indication: Rheumatoid arthritis
     Dosage: FORM STRENGTH: 5 MILLIGRAM?FREQUENCY TEXT: 1 IN THE MORNING
     Dates: start: 20190826
  21. BETHANECHOL [Concomitant]
     Active Substance: BETHANECHOL
     Indication: Impaired gastric emptying
     Dosage: 2 BEFORE MEALS AND A BEDTIME
  22. BETHANECHOL [Concomitant]
     Active Substance: BETHANECHOL
     Indication: Impaired gastric emptying
     Dosage: FREQUENCY TEXT: 2 BEFORE MEALS AND A BEDTIME
     Dates: start: 20170520
  23. MECLIZINE [Concomitant]
     Active Substance: MECLIZINE HYDROCHLORIDE
     Indication: Meniere^s disease
     Dosage: FORM STRENGTH: 25 MILLIGRAM?FREQUENCY TEXT: 1 EVERY 6 HOURS
     Dates: start: 20141022
  24. RIZATRIPTAN BENZOATE [Concomitant]
     Active Substance: RIZATRIPTAN BENZOATE
     Indication: Migraine
     Dosage: FORM STRENGTH: 10 MILLIGRAM?FREQUENCY TEXT: 1 AS NEEDED
     Route: 048
     Dates: start: 20210127
  25. LAMOTRIGINE [Concomitant]
     Active Substance: LAMOTRIGINE
     Indication: Seizure
     Dosage: FORM STRENGTH: 100 MILLIGRAM?FREQUENCY TEXT: 3 IN THE MORNING?ER
     Dates: start: 20160406
  26. CARNITINE [Concomitant]
     Active Substance: CARNITINE
     Indication: Product used for unknown indication
     Dosage: (LIQUID) 2000 MG?FORM STRENGTH: 2000 MILLIGRAM?FREQUENCY TEXT: 1 DOSE IN THE MORNING
     Dates: start: 20211221
  27. ROSUVASTATIN CALCIUM [Concomitant]
     Active Substance: ROSUVASTATIN CALCIUM
     Indication: Blood cholesterol
     Dosage: FORM STRENGTH: 40 MILLIGRAM?FREQUENCY TEXT: 1 AT NIGHT
     Dates: start: 20160718
  28. SPIRONOLACTONE [Concomitant]
     Active Substance: SPIRONOLACTONE
     Indication: Meniere^s disease
     Dosage: FORM STRENGTH: 25 MILLIGRAM?FREQUENCY TEXT: 1 IN THE MORNING
     Dates: start: 20170928
  29. TROKENDI XR [Concomitant]
     Active Substance: TOPIRAMATE
     Indication: Migraine
     Dosage: FORM STRENGTH: 50 MILLIGRAM?FREQUENCY TEXT: 1 IN THE MORNING
     Dates: start: 20220521
  30. TROKENDI XR [Concomitant]
     Active Substance: TOPIRAMATE
     Indication: Migraine
     Dosage: FORM STRENGTH: 100 MILLIGRAM
  31. VITAMIN D [Concomitant]
     Active Substance: VITAMIN D NOS
     Indication: Routine health maintenance
     Dosage: FORM STRENGTH: 50000 IU (INTERNATIONAL UNIT)?FREQUENCY TEXT: 1 A WEEK?D3-50
     Dates: start: 20220729
  32. D3-50  (VITAMIN D) [Concomitant]
     Indication: Routine health maintenance
     Dates: start: 20220729
  33. D3-50  (VITAMIN D) [Concomitant]
     Indication: Routine health maintenance
     Dosage: FORM STRENGTH: 50000 IU (INTERNATIONAL UNIT)?FREQUENCY TEXT: 1 A WEEK
     Dates: start: 20220729
  34. PROBIOTICS NOS [Concomitant]
     Active Substance: PROBIOTICS NOS
     Indication: Impaired gastric emptying
     Dosage: FREQUENCY TEXT: 1 IN MORNING
     Dates: start: 20060101
  35. GINGER [Concomitant]
     Active Substance: GINGER
     Indication: Impaired gastric emptying
     Dosage: FORM STRENGTH: 1500 MILLIGRAM?FREQUENCY TEXT: 1 AS NEEDED WITH MEALS
     Dates: start: 20210717
  36. Digestive enzymes complex [Concomitant]
     Indication: Product used for unknown indication
     Dosage: FREQUENCY TEXT: 1 TO 2 WITH MEALS
     Dates: start: 20180412
  37. BAYER [Concomitant]
     Active Substance: ASPIRIN
     Indication: Cardiac disorder
     Dosage: 1 AT NIGHT
     Dates: start: 20141119
  38. COENZYME Q10 [Concomitant]
     Active Substance: DIETARY SUPPLEMENT\UBIDECARENONE
     Indication: Myalgia
     Dosage: 200 MG ?FREQUENCY TEXT: TWICE A DAY
     Dates: start: 20171020
  39. MAGNESIUM [Concomitant]
     Active Substance: MAGNESIUM
     Indication: Angiopathy
     Dosage: FORM STRENGTH: 500 MILLIGRAM?FREQUENCY TEXT: 1 AT NIGHT
     Dates: start: 20211206
  40. PFIZER-BIONTECH COVID-19 VACCINE [Concomitant]
     Active Substance: TOZINAMERAN
     Indication: COVID-19 immunisation
     Dosage: 1ST BOOSTER
     Route: 030
     Dates: start: 20211027, end: 20211027
  41. PFIZER-BIONTECH COVID-19 VACCINE [Concomitant]
     Active Substance: TOZINAMERAN
     Indication: COVID-19 immunisation
     Dosage: 2ND BOOSTER
     Route: 030
     Dates: start: 20220623, end: 20220623
  42. PFIZER-BIONTECH COVID-19 VACCINE [Concomitant]
     Active Substance: TOZINAMERAN
     Indication: COVID-19 immunisation
     Dosage: 3RD BOOSTER
     Route: 030
     Dates: start: 20221115, end: 20221115
  43. PFIZER-BIONTECH COVID-19 VACCINE [Concomitant]
     Active Substance: TOZINAMERAN
     Indication: COVID-19 immunisation
     Dosage: 2ND DOSE
     Route: 030
     Dates: start: 20210323, end: 20210323
  44. PFIZER-BIONTECH COVID-19 VACCINE [Concomitant]
     Active Substance: TOZINAMERAN
     Indication: COVID-19 immunisation
     Dosage: 1ST DOSE
     Route: 030
     Dates: start: 20210303, end: 20210303
  45. INFLUENZA VIRUS VACCINE [Concomitant]
     Active Substance: INFLUENZA VIRUS VACCINE
     Indication: Antiviral prophylaxis
     Dates: start: 20221003
  46. ACETAMINOPHEN\CODEINE PHOSPHATE [Concomitant]
     Active Substance: ACETAMINOPHEN\CODEINE PHOSPHATE
     Indication: Back pain
     Dosage: 1 AS NEEDED
     Route: 048
     Dates: start: 20220417

REACTIONS (13)
  - Intervertebral disc protrusion [Not Recovered/Not Resolved]
  - Hypoaesthesia [Recovered/Resolved]
  - Back pain [Not Recovered/Not Resolved]
  - Aortic dilatation [Not Recovered/Not Resolved]
  - Gait disturbance [Recovered/Resolved]
  - Arthropathy [Not Recovered/Not Resolved]
  - Eye disorder [Unknown]
  - Musculoskeletal disorder [Unknown]
  - Hypoaesthesia [Not Recovered/Not Resolved]
  - Intervertebral disc protrusion [Unknown]
  - Hypoaesthesia [Not Recovered/Not Resolved]
  - Gait disturbance [Not Recovered/Not Resolved]
  - Spinal stenosis [Unknown]

NARRATIVE: CASE EVENT DATE: 20180101
